FAERS Safety Report 8573921-6 (Version None)
Quarter: 2012Q2

REPORT INFORMATION
  Report Type: 
  Country: None (occurrence: None)
  Receive Date: 20120423
  Receipt Date: 20100429
  Transmission Date: 20120825
  Serious: Yes (Hospitalization)
  Sender: FDA-Public Use
  Company Number: PHHY2010US27683

PATIENT
  Sex: Female
  Weight: 81.8 kg

DRUGS (6)
  1. FOLIC ACID [Concomitant]
  2. RANITIDINE [Concomitant]
  3. EXJADE [Suspect]
     Indication: SICKLE CELL ANAEMIA
     Dosage: 1500 MG DAILY, ORAL
     Route: 048
     Dates: start: 20100208
  4. WARFARIN SODIUM [Concomitant]
  5. PHENERGAN HCL [Concomitant]
  6. NEURONTIN [Concomitant]

REACTIONS (1)
  - SICKLE CELL ANAEMIA WITH CRISIS [None]
